FAERS Safety Report 18781535 (Version 1)
Quarter: 2021Q1

REPORT INFORMATION
  Report Type: Other
  Country: US (occurrence: US)
  Receive Date: 20210125
  Receipt Date: 20210125
  Transmission Date: 20210419
  Serious: No
  Sender: FDA-Public Use
  Company Number: US-ROCHE-2755925

PATIENT
  Sex: Female

DRUGS (1)
  1. OCREVUS [Suspect]
     Active Substance: OCRELIZUMAB
     Indication: RELAPSING MULTIPLE SCLEROSIS
     Dosage: INFUSE 300MG FOLLOWED BY 300MG IN 14 DAYS. 600MG Q?DATE OF TREATMENT: 21/JAN/2021.
     Route: 042
     Dates: start: 20201222

REACTIONS (1)
  - COVID-19 [Recovered/Resolved]
